FAERS Safety Report 4860829-2 (Version None)
Quarter: 2005Q4

REPORT INFORMATION
  Report Type: 
  Country: None (occurrence: None)
  Receive Date: 20051216
  Receipt Date: 20051206
  Transmission Date: 20060501
  Serious: Yes (Other)
  Sender: FDA-Public Use
  Company Number: S05-USA-05174-01

PATIENT
  Age: 46 Year
  Sex: Female

DRUGS (1)
  1. LEXAPRO [Suspect]
     Dosage: 10 MG QD PO
     Route: 048
     Dates: start: 20051001

REACTIONS (4)
  - DEAFNESS [None]
  - DIARRHOEA [None]
  - IMPAIRED DRIVING ABILITY [None]
  - TREMOR [None]
